FAERS Safety Report 4802379-5 (Version None)
Quarter: 2005Q4

REPORT INFORMATION
  Report Type: 
  Country: None (occurrence: None)
  Receive Date: 20051014
  Receipt Date: 20040902
  Transmission Date: 20060501
  Serious: Yes (Hospitalization, Other)
  Sender: FDA-Public Use
  Company Number: 2004062470

PATIENT
  Age: 47 Year
  Sex: Male
  Weight: 67.5 kg

DRUGS (9)
  1. NEURONTIN [Suspect]
     Indication: NEURALGIA
     Dosage: 1200 MG (600 MG, 2 IN 1 D), ORAL
     Route: 048
     Dates: start: 20040101, end: 20040801
  2. PANTOPRAZOLE SODIUM [Concomitant]
  3. ZOLPIDEM TARTRATE [Concomitant]
  4. VICODIN [Concomitant]
  5. FENTANYL [Concomitant]
  6. QUINAPRIL HCL [Concomitant]
  7. FLUOROURACIL [Concomitant]
  8. LEUCOVORIN CALCIUM [Concomitant]
  9. ALL OTHER THERAPEUTIC PRODUCTS (ALL OTHER THERAPEUTIC PRODUCTS) [Concomitant]

REACTIONS (1)
  - PANCREATITIS [None]
